FAERS Safety Report 7059914-9 (Version None)
Quarter: 2010Q4

REPORT INFORMATION
  Report Type: 
  Country: None (occurrence: None)
  Receive Date: 20101025
  Receipt Date: 20101013
  Transmission Date: 20110411
  Serious: Yes (Hospitalization)
  Sender: FDA-Public Use
  Company Number: HU-ELI_LILLY_AND_COMPANY-HU201010003598

PATIENT
  Sex: Male
  Weight: 75.5 kg

DRUGS (8)
  1. PEMETREXED [Suspect]
     Indication: NON-SMALL CELL LUNG CANCER
     Dosage: 950 MG, UNK
     Dates: start: 20100922, end: 20100922
  2. CISPLATIN [Suspect]
     Indication: NON-SMALL CELL LUNG CANCER
     Dosage: 143 MG, UNK
     Dates: start: 20100922, end: 20100922
  3. EMETRON [Concomitant]
  4. TRAMADOL HCL [Concomitant]
  5. SPIRIVA [Concomitant]
  6. VENTOLIN                                /SCH/ [Concomitant]
  7. FOLSAURE [Concomitant]
  8. CONCOR [Concomitant]

REACTIONS (2)
  - ANAEMIA [None]
  - PERICARDIAL EFFUSION [None]
